FAERS Safety Report 12620326 (Version 1)
Quarter: 2016Q3

REPORT INFORMATION
  Report Type: Spontaneous
  Country: VE (occurrence: VE)
  Receive Date: 20160803
  Receipt Date: 20160803
  Transmission Date: 20161109
  Serious: Yes (Other)
  Sender: FDA-Public Use
  Company Number: PHHY2016VE106634

PATIENT
  Sex: Male

DRUGS (4)
  1. VALCOTE [Concomitant]
     Active Substance: VALPROATE SODIUM
     Indication: BRAIN NEOPLASM
     Dosage: UNK UNK, QD
     Route: 065
  2. TEGRETOL [Suspect]
     Active Substance: CARBAMAZEPINE
     Dosage: 200 MG, QD (STRENGTH: 200 MG)
     Route: 065
  3. TEGRETOL [Suspect]
     Active Substance: CARBAMAZEPINE
     Indication: BRAIN NEOPLASM
     Dosage: 400 MG, QD
     Route: 065
  4. TOPIRAMATE. [Suspect]
     Active Substance: TOPIRAMATE
     Indication: BRAIN NEOPLASM
     Dosage: 200 MG, QD
     Route: 065

REACTIONS (3)
  - Product use issue [Unknown]
  - Seizure [Unknown]
  - Reduced facial expression [Unknown]
